FAERS Safety Report 17663554 (Version 2)
Quarter: 2021Q1

REPORT INFORMATION
  Report Type: Report from Study
  Country: IT (occurrence: IT)
  Receive Date: 20200413
  Receipt Date: 20210324
  Transmission Date: 20210419
  Serious: Yes (Hospitalization, Other)
  Sender: FDA-Public Use
  Company Number: IT-AUROBINDO-AUR-APL-2020-017524

PATIENT
  Sex: Male

DRUGS (4)
  1. RIBAVIRIN CAPSULE [Suspect]
     Active Substance: RIBAVIRIN
     Indication: HEPATIC CIRRHOSIS
     Dosage: 400 MILLIGRAM, EVERY WEEK
     Route: 048
  2. RIBAVIRIN CAPSULE [Suspect]
     Active Substance: RIBAVIRIN
     Indication: HEPATITIS C
     Dosage: 200 MILLIGRAM, 3 TIMES A DAY EVERY WEEK  (600 MG, EVERY WEK)
     Route: 065
  3. RIBAVIRIN CAPSULE [Suspect]
     Active Substance: RIBAVIRIN
     Indication: NEPHROPATHY
     Dosage: UNK
     Route: 065
  4. RIBAVIRIN CAPSULE [Suspect]
     Active Substance: RIBAVIRIN
     Indication: GLOMERULONEPHRITIS

REACTIONS (1)
  - Haemolytic anaemia [Recovering/Resolving]
